FAERS Safety Report 6077966-X (Version None)
Quarter: 2009Q1

REPORT INFORMATION
  Report Type: 
  Country: None (occurrence: None)
  Receive Date: 20090213
  Receipt Date: 20090205
  Transmission Date: 20090719
  Serious: Yes (Other)
  Sender: FDA-Public Use
  Company Number: NL-TEVA-185151ISR

PATIENT
  Sex: Female
  Weight: 85 kg

DRUGS (3)
  1. TRAMADOL HCL [Suspect]
     Indication: BACK PAIN
  2. SUMATRIPTAN [Interacting]
     Indication: MIGRAINE
  3. CITALOPRAM HYDROBROMIDE [Concomitant]
     Dates: start: 20071221

REACTIONS (4)
  - DRUG INTERACTION [None]
  - HEADACHE [None]
  - NECK PAIN [None]
  - VOMITING [None]
